FAERS Safety Report 9281129 (Version 2)
Quarter: 2013Q2

REPORT INFORMATION
  Report Type: Spontaneous
  Country: US (occurrence: US)
  Receive Date: 20130509
  Receipt Date: 20130520
  Transmission Date: 20140414
  Serious: Yes (Hospitalization)
  Sender: FDA-Public Use
  Company Number: US-BAYER-2013-055794

PATIENT
  Age: 29 Year
  Sex: Female

DRUGS (13)
  1. YASMIN [Suspect]
     Dosage: UNK
     Dates: start: 200302, end: 200708
  2. MAXAIR [Concomitant]
     Dosage: UNK
     Dates: start: 20070510
  3. CLOBETASOL [Concomitant]
     Dosage: 0.05 %, UNK
     Route: 061
     Dates: start: 20070628
  4. NEXIUM [Concomitant]
     Dosage: 20 MG, PRN
     Route: 048
  5. SINGULAIR [Concomitant]
     Dosage: 10 MG, UNK
     Route: 048
  6. ALLEGRA [Concomitant]
     Dosage: 180 MG, UNK
     Route: 048
  7. MVI [Concomitant]
     Route: 048
  8. POTASSIUM [Concomitant]
     Route: 048
  9. VITAMIN E [Concomitant]
     Route: 048
  10. VITAMIN C [Concomitant]
     Route: 048
  11. VITAMIN D [Concomitant]
     Route: 048
  12. CALCIUM [Concomitant]
     Route: 048
  13. FIORICET [Concomitant]

REACTIONS (7)
  - Deep vein thrombosis [None]
  - Injury [None]
  - Pain [None]
  - Emotional distress [None]
  - General physical health deterioration [None]
  - Anxiety [None]
  - Pain [None]
